FAERS Safety Report 21284676 (Version 1)
Quarter: 2022Q3

REPORT INFORMATION
  Report Type: Spontaneous
  Country: CN (occurrence: CN)
  Receive Date: 20220902
  Receipt Date: 20220902
  Transmission Date: 20221027
  Serious: Yes (Hospitalization, Other)
  Sender: FDA-Public Use
  Company Number: None

PATIENT
  Age: 46 Year
  Sex: Female
  Weight: 61 kg

DRUGS (6)
  1. CYCLOPHOSPHAMIDE [Suspect]
     Active Substance: CYCLOPHOSPHAMIDE
     Indication: Breast cancer stage I
     Dosage: DOSAGE FORM- INJECTION, 920 MG, ONE-TIME (DILUTED WITH 0.9% SODIUM CHLORIDE 100 ML)
     Route: 041
     Dates: start: 20220811, end: 20220811
  2. CYCLOPHOSPHAMIDE [Suspect]
     Active Substance: CYCLOPHOSPHAMIDE
     Indication: HER2 protein overexpression
  3. SODIUM CHLORIDE [Suspect]
     Active Substance: SODIUM CHLORIDE
     Indication: Medication dilution
     Dosage: DOSAGE FORM- INJECTION, 100 ML, ONE-TIME (DILUTED WITH CYCLOPHOSPHAMIDE 920 MG)
     Route: 041
     Dates: start: 20220811, end: 20220811
  4. DEXTROSE MONOHYDRATE [Suspect]
     Active Substance: DEXTROSE MONOHYDRATE
     Indication: Medication dilution
     Dosage: DOSAGE FORM- INJECTION, 250 ML, ONE-TIME (DILUTED WITH PIRARUBICIN HYDROCHLORIDE 77 MG)
     Route: 041
     Dates: start: 20220811, end: 20220811
  5. PIRARUBICIN HYDROCHLORIDE [Suspect]
     Active Substance: PIRARUBICIN HYDROCHLORIDE
     Indication: Breast cancer stage I
     Dosage: DOSAGE FORM- ALSO REPORTED AS POWDER, 77 MG, ONE-TIME (DILUTED WITH 5% GLUCOSE 250 ML)
     Route: 041
     Dates: start: 20220811, end: 20220811
  6. PIRARUBICIN HYDROCHLORIDE [Suspect]
     Active Substance: PIRARUBICIN HYDROCHLORIDE
     Indication: HER2 protein overexpression

REACTIONS (2)
  - White blood cell count decreased [Recovering/Resolving]
  - Neutrophil count decreased [Recovering/Resolving]

NARRATIVE: CASE EVENT DATE: 20220822
